FAERS Safety Report 13837482 (Version 1)
Quarter: 2017Q3

REPORT INFORMATION
  Report Type: Report from Study
  Country: CO (occurrence: CO)
  Receive Date: 20170804
  Receipt Date: 20170804
  Transmission Date: 20171127
  Serious: Yes (Other)
  Sender: FDA-Public Use
  Company Number: CO-EMD SERONO-8114014

PATIENT
  Age: 47 Year
  Sex: Female

DRUGS (1)
  1. REBIF [Suspect]
     Active Substance: INTERFERON BETA-1A
     Indication: RELAPSING-REMITTING MULTIPLE SCLEROSIS
     Route: 058
     Dates: start: 20160201, end: 201707

REACTIONS (9)
  - Systemic lupus erythematosus [Unknown]
  - Pain in extremity [Recovering/Resolving]
  - Bone pain [Recovering/Resolving]
  - Malaise [Unknown]
  - Myalgia [Recovering/Resolving]
  - Blood count abnormal [Recovering/Resolving]
  - White blood cell analysis abnormal [Recovering/Resolving]
  - Arthralgia [Recovering/Resolving]
  - Central nervous system lesion [Not Recovered/Not Resolved]

NARRATIVE: CASE EVENT DATE: 20160920
